FAERS Safety Report 18918041 (Version 1)
Quarter: 2021Q1

REPORT INFORMATION
  Report Type: Spontaneous
  Country: US (occurrence: US)
  Receive Date: 20210219
  Receipt Date: 20210219
  Transmission Date: 20210420
  Serious: No
  Sender: FDA-Public Use
  Company Number: US-PERRIGO-20US005589

PATIENT
  Age: 56 Year
  Sex: Female
  Weight: 65.76 kg

DRUGS (5)
  1. AMBEREN [Concomitant]
     Indication: HOT FLUSH
     Dosage: UNK, UNK
     Route: 048
     Dates: start: 2019
  2. AMBEREN [Concomitant]
     Indication: NIGHT SWEATS
  3. AMBEREN [Concomitant]
     Indication: MOOD SWINGS
  4. ALENDRONATE SODIUM. [Concomitant]
     Active Substance: ALENDRONATE SODIUM
     Indication: OSTEOPOROSIS
     Dosage: 70 MG, ONCE WEEKLY
     Route: 048
     Dates: start: 201911
  5. KETOCONAZOLE. [Suspect]
     Active Substance: KETOCONAZOLE
     Indication: PRURITUS
     Dosage: SMALL AMOUNT, QD FOR 5 TO 6 DAYS
     Route: 061
     Dates: start: 201911, end: 201911

REACTIONS (4)
  - Hypersensitivity [Recovered/Resolved]
  - Application site papules [Recovered/Resolved]
  - Off label use [Recovered/Resolved]
  - Application site ulcer [Not Recovered/Not Resolved]

NARRATIVE: CASE EVENT DATE: 201911
